FAERS Safety Report 5152692-X (Version None)
Quarter: 2006Q4

REPORT INFORMATION
  Report Type: 
  Country: None (occurrence: None)
  Receive Date: 20061116
  Receipt Date: 20061110
  Transmission Date: 20070319
  Serious: Yes (Other)
  Sender: FDA-Public Use
  Company Number: AU-MERCK-0611AUS00064

PATIENT
  Age: 63 Year
  Sex: Female

DRUGS (8)
  1. FOSAMAX [Suspect]
     Indication: OSTEOPOROSIS
     Route: 048
     Dates: start: 20061031, end: 20061103
  2. HYDROCHLOROTHIAZIDE AND IRBESARTAN [Concomitant]
     Indication: HYPERTENSION
     Route: 065
  3. VERAPAMIL HYDROCHLORIDE [Concomitant]
     Indication: HYPERTENSION
     Route: 065
  4. HYDROXYCHLOROQUINE SULFATE [Concomitant]
     Indication: INFLAMMATION
     Route: 065
  5. ASPIRIN [Concomitant]
     Indication: ANTICOAGULANT THERAPY
     Route: 065
  6. NAPROXEN [Concomitant]
     Indication: ANALGESIC EFFECT
     Route: 065
  7. OMEPRAZOLE [Concomitant]
     Indication: ANTACID THERAPY
     Route: 065
  8. FLOXACILLIN [Concomitant]
     Indication: LYMPHOEDEMA
     Route: 065

REACTIONS (4)
  - BONE PAIN [None]
  - MALAISE [None]
  - SYSTEMIC LUPUS ERYTHEMATOSUS [None]
  - VOMITING [None]
